FAERS Safety Report 6911237-1 (Version None)
Quarter: 2010Q3

REPORT INFORMATION
  Report Type: 
  Country: None (occurrence: None)
  Receive Date: 20100806
  Receipt Date: 20100726
  Transmission Date: 20110219
  Serious: Yes (Other)
  Sender: FDA-Public Use
  Company Number: PHHY2010US45137

PATIENT
  Sex: Female

DRUGS (3)
  1. EXJADE [Suspect]
     Indication: ACUTE MONOCYTIC LEUKAEMIA
     Dosage: 1000 MG, TID
     Route: 048
     Dates: start: 20100413
  2. EXJADE [Suspect]
     Dosage: UNK
  3. DEXAMETHASONE [Concomitant]

REACTIONS (4)
  - ABDOMINAL PAIN [None]
  - DUODENAL ULCER [None]
  - ENDOSCOPY [None]
  - HELICOBACTER INFECTION [None]
